FAERS Safety Report 5215727-1 (Version None)
Quarter: 2007Q1

REPORT INFORMATION
  Report Type: 
  Country: None (occurrence: None)
  Receive Date: 20070123
  Receipt Date: 20070117
  Transmission Date: 20070707
  Serious: Yes (Disabling)
  Sender: FDA-Public Use
  Company Number: DE-SOLVAY-00207000184

PATIENT
  Sex: Male

DRUGS (6)
  1. METHIONINE [Concomitant]
     Indication: ILL-DEFINED DISORDER
     Dosage: DAILY DOSE: 3 GRAM(S)
     Route: 065
  2. DRONABINOL [Suspect]
     Indication: MUSCLE SPASTICITY
     Dosage: DAILY DOSE: 5 MILLIGRAM(S)
     Route: 048
  3. IPRATROPIUM BROMIDE [Concomitant]
     Indication: ILL-DEFINED DISORDER
     Dosage: DAILY DOSE: 10 MILLIGRAM(S)
     Route: 065
  4. BACLOFEN [Suspect]
     Indication: MUSCLE SPASTICITY
     Dosage: DAILY DOSE: 75 MILLIGRAM(S)
     Route: 048
  5. SODIUM PICOSULFATE [Concomitant]
     Indication: CONSTIPATION
     Dosage: DAILY DOSE:  UNKNOWN
     Route: 065
  6. BISACODYL [Concomitant]
     Indication: ILL-DEFINED DISORDER
     Dosage: DAILY DOSE:  EVERY TWO DAYS
     Route: 054

REACTIONS (3)
  - DRUG INTERACTION [None]
  - RESPIRATORY FAILURE [None]
  - SOMNOLENCE [None]
